FAERS Safety Report 8558225-X (Version None)
Quarter: 2012Q3

REPORT INFORMATION
  Report Type: 
  Country: None (occurrence: None)
  Receive Date: 20120727
  Receipt Date: 20120727
  Transmission Date: 20120928
  Serious: No
  Sender: FDA-Public Use
  Company Number: None

PATIENT
  Sex: Female
  Weight: 69.4003 kg

DRUGS (2)
  1. LEXAPRO [Suspect]
     Indication: MAJOR DEPRESSION
     Dosage: 40 MG LEXAPRO QD PO
     Route: 048
     Dates: start: 20120201
  2. LEXAPRO [Suspect]
     Indication: OBSESSIVE-COMPULSIVE DISORDER
     Dosage: 40 MG LEXAPRO QD PO
     Route: 048
     Dates: start: 20120201

REACTIONS (5)
  - PRODUCT SUBSTITUTION ISSUE [None]
  - DRUG INTOLERANCE [None]
  - DEPRESSIVE SYMPTOM [None]
  - SEDATION [None]
  - DISEASE RECURRENCE [None]
